FAERS Safety Report 4862092-5 (Version None)
Quarter: 2005Q4

REPORT INFORMATION
  Report Type: 
  Country: None (occurrence: None)
  Receive Date: 20051221
  Receipt Date: 20040906
  Transmission Date: 20060501
  Serious: Yes (Death)
  Sender: FDA-Public Use
  Company Number: FR-BOEHRINGER INGELHEIM PHARMACEUTICALS, INC.-2004-FF-00520FF

PATIENT
  Sex: Female

DRUGS (10)
  1. MOBIC [Suspect]
     Indication: BACK PAIN
     Route: 030
     Dates: start: 20040701
  2. MEDIATOR [Concomitant]
     Route: 048
  3. DIAMICRON [Concomitant]
     Route: 048
  4. SOPROL [Concomitant]
     Route: 048
  5. DIAFUSOR [Concomitant]
     Route: 065
  6. ASPEGIC 325 [Concomitant]
     Route: 048
  7. VIOXX [Concomitant]
     Route: 048
  8. VASTAREL [Concomitant]
  9. ELISOR [Concomitant]
     Route: 048
  10. NITRODERM [Concomitant]
     Route: 061

REACTIONS (1)
  - MYOCARDIAL INFARCTION [None]
